FAERS Safety Report 9735195 (Version 2)
Quarter: 2014Q1

REPORT INFORMATION
  Report Type: Spontaneous
  Country: US (occurrence: US)
  Receive Date: 20131206
  Receipt Date: 20140124
  Transmission Date: 20141002
  Serious: No
  Sender: FDA-Public Use
  Company Number: US-PFIZER INC-2013344744

PATIENT
  Age: 70 Year
  Sex: Male
  Weight: 94.33 kg

DRUGS (1)
  1. ADVIL [Suspect]
     Indication: ARTHRALGIA
     Dosage: UNK, TWO TIMES A DAY
     Route: 048
     Dates: start: 201311, end: 201311

REACTIONS (1)
  - Drug ineffective [Unknown]
